FAERS Safety Report 25507716 (Version 4)
Quarter: 2025Q3

REPORT INFORMATION
  Report Type: Report from Study
  Country: US (occurrence: US)
  Receive Date: 20250703
  Receipt Date: 20250904
  Transmission Date: 20251020
  Serious: No
  Sender: SUNOVION
  Company Number: US-SUMITOMO PHARMA SWITZERLAND GMBH-2025SPA007696

PATIENT
  Age: 70 Year
  Sex: Male

DRUGS (7)
  1. ORGOVYX [Suspect]
     Active Substance: RELUGOLIX
     Indication: Prostate cancer
     Route: 048
  2. ORGOVYX [Suspect]
     Active Substance: RELUGOLIX
     Route: 048
  3. CALCIUM [Concomitant]
     Active Substance: CALCIUM
     Indication: Bone disorder
  4. VITAMIN D [Concomitant]
     Active Substance: VITAMIN D NOS
     Indication: Bone disorder
  5. JWH-018 [Concomitant]
     Active Substance: JWH-018
     Indication: Bone disorder
  6. VALERIAN [Concomitant]
     Active Substance: VALERIAN
  7. MELATONIN [Concomitant]
     Active Substance: MELATONIN

REACTIONS (12)
  - Poor quality sleep [Unknown]
  - Muscle spasms [Unknown]
  - Cognitive disorder [Unknown]
  - Urinary hesitation [Unknown]
  - Hypotension [Unknown]
  - Erectile dysfunction [Unknown]
  - Frequent bowel movements [Unknown]
  - Sleep disorder [Not Recovered/Not Resolved]
  - Hypertension [Unknown]
  - Libido decreased [Unknown]
  - Hot flush [Unknown]
  - Product dose omission in error [Recovered/Resolved]
